FAERS Safety Report 5823224-5 (Version None)
Quarter: 2008Q3

REPORT INFORMATION
  Report Type: 
  Country: None (occurrence: None)
  Receive Date: 20080725
  Receipt Date: 20080721
  Transmission Date: 20090109
  Serious: Yes (Other)
  Sender: FDA-Public Use
  Company Number: IT-SANOFI-SYNTHELABO-A06200800424

PATIENT
  Age: 45 Year
  Sex: Male

DRUGS (2)
  1. PLAQUENIL [Suspect]
     Indication: LYME DISEASE
     Route: 048
     Dates: start: 20080301
  2. PLAQUENIL [Suspect]
     Route: 048
     Dates: end: 20080701

REACTIONS (1)
  - ANXIETY [None]
